FAERS Safety Report 19001495 (Version 1)
Quarter: 2021Q1

REPORT INFORMATION
  Report Type: Spontaneous
  Country: US (occurrence: US)
  Receive Date: 20210312
  Receipt Date: 20210312
  Transmission Date: 20210420
  Serious: No
  Sender: FDA-Public Use
  Company Number: US-FARMAPROD-202101-0029

PATIENT
  Sex: Female

DRUGS (10)
  1. VITAMIN E [Concomitant]
     Active Substance: .ALPHA.-TOCOPHEROL
  2. LORAZEPAM. [Concomitant]
     Active Substance: LORAZEPAM
  3. MAGNESIUM [Concomitant]
     Active Substance: MAGNESIUM
  4. ZOLPIDEM TARTRATE. [Concomitant]
     Active Substance: ZOLPIDEM TARTRATE
  5. FAMCICLOVIR. [Concomitant]
     Active Substance: FAMCICLOVIR
  6. OXERVATE [Suspect]
     Active Substance: CENEGERMIN-BKBJ
     Indication: NEUROTROPHIC KERATOPATHY
     Route: 047
  7. SUPER B?50 COMPLEX [Concomitant]
  8. XIIDRA [Concomitant]
     Active Substance: LIFITEGRAST
  9. SYSTANE (HYPROMELLOSE 2910 (4000 MPA.S)) [Concomitant]
     Active Substance: HYPROMELLOSE 2910 (4000 MPA.S)
     Dosage: 0.3?04 % DROPS
  10. SOOTHE HYDRATION [Concomitant]
     Active Substance: POVIDONE

REACTIONS (3)
  - Facial pain [Unknown]
  - Ocular discomfort [Unknown]
  - Ocular hyperaemia [Unknown]
